FAERS Safety Report 7298372-6 (Version None)
Quarter: 2011Q1

REPORT INFORMATION
  Report Type: 
  Country: None (occurrence: None)
  Receive Date: 20110217
  Receipt Date: 20110209
  Transmission Date: 20110831
  Serious: Yes (Hospitalization)
  Sender: FDA-Public Use
  Company Number: BR-US-EMD SERONO, INC.-7042206

PATIENT
  Sex: Female

DRUGS (2)
  1. REBIF [Suspect]
     Indication: RELAPSING-REMITTING MULTIPLE SCLEROSIS
     Dates: start: 20060320
  2. HORMONES [Concomitant]

REACTIONS (10)
  - CRYING [None]
  - MOTOR DYSFUNCTION [None]
  - COGNITIVE DISORDER [None]
  - FATIGUE [None]
  - INJECTION SITE PAIN [None]
  - NODULE [None]
  - GALLBLADDER OPERATION [None]
  - SPEECH DISORDER [None]
  - IRRITABILITY [None]
  - INJECTION SITE ERYTHEMA [None]
